FAERS Safety Report 9210828 (Version 2)
Quarter: 2013Q2

REPORT INFORMATION
  Report Type: Spontaneous
  Country: IT (occurrence: IT)
  Receive Date: 20130404
  Receipt Date: 20130508
  Transmission Date: 20140414
  Serious: Yes (Hospitalization)
  Sender: FDA-Public Use
  Company Number: IT-TEVA-395419ISR

PATIENT
  Age: 80 Year
  Sex: Female

DRUGS (3)
  1. CARBOPLATINO TEVA [Suspect]
     Indication: OVARIAN CANCER RECURRENT
     Route: 011
     Dates: start: 20130319, end: 20130319
  2. PROCAPTAN [Concomitant]
     Route: 048
  3. ONDANSETRONE HIKMA [Concomitant]
     Dosage: 8MG/4ML
     Route: 042

REACTIONS (5)
  - Visual impairment [Recovered/Resolved]
  - Hypotension [Recovered/Resolved]
  - Syncope [Recovered/Resolved]
  - Electrocardiogram ST segment depression [Recovered/Resolved]
  - Electrocardiogram ST segment elevation [Recovered/Resolved]
